FAERS Safety Report 25958883 (Version 2)
Quarter: 2025Q4

REPORT INFORMATION
  Report Type: Report from Study
  Country: US (occurrence: US)
  Receive Date: 20251025
  Receipt Date: 20251030
  Transmission Date: 20260117
  Serious: Yes (Other)
  Sender: CSL BEHRING
  Company Number: US-BEH-2025222137

PATIENT
  Age: 50 Year
  Sex: Female
  Weight: 74.8 kg

DRUGS (4)
  1. HIZENTRA [Suspect]
     Active Substance: HUMAN IMMUNOGLOBULIN G
     Indication: Immunodeficiency common variable
     Dosage: 12 G, QW
     Route: 058
  2. HIZENTRA [Suspect]
     Active Substance: HUMAN IMMUNOGLOBULIN G
     Dosage: 12 G, QW
     Route: 058
     Dates: start: 20251011, end: 20251011
  3. HIZENTRA [Suspect]
     Active Substance: HUMAN IMMUNOGLOBULIN G
     Dosage: UNK
     Route: 058
     Dates: start: 20251017, end: 20251017
  4. HIZENTRA [Suspect]
     Active Substance: HUMAN IMMUNOGLOBULIN G
     Dosage: UNK
     Route: 058

REACTIONS (8)
  - Neuropathy peripheral [Not Recovered/Not Resolved]
  - Infusion site swelling [Recovering/Resolving]
  - Infusion site pruritus [Recovering/Resolving]
  - Infusion site erythema [Recovering/Resolving]
  - Infusion site urticaria [Recovered/Resolved]
  - Infusion site pruritus [Unknown]
  - Infusion site pruritus [Unknown]
  - Infusion site erythema [Unknown]

NARRATIVE: CASE EVENT DATE: 20251011
